FAERS Safety Report 14262392 (Version 3)
Quarter: 2018Q1

REPORT INFORMATION
  Report Type: Spontaneous
  Country: KR (occurrence: KR)
  Receive Date: 20171208
  Receipt Date: 20180105
  Transmission Date: 20180508
  Serious: Yes (Death, Other)
  Sender: FDA-Public Use
  Company Number: KR-AMGEN-KORSP2017182854

PATIENT

DRUGS (3)
  1. REVLIMID [Concomitant]
     Active Substance: LENALIDOMIDE
     Dosage: UNK
  2. DEXAMETHASONE. [Concomitant]
     Active Substance: DEXAMETHASONE
     Dosage: UNK
  3. KYPROLIS [Suspect]
     Active Substance: CARFILZOMIB
     Indication: PLASMA CELL MYELOMA
     Dosage: UNK
     Route: 065
     Dates: start: 201604

REACTIONS (17)
  - Death [Fatal]
  - Febrile neutropenia [Unknown]
  - Hypokalaemia [Unknown]
  - Respiratory tract infection [Unknown]
  - Drug effect incomplete [Unknown]
  - Plasma cell myeloma [Unknown]
  - Thrombocytopenia [Unknown]
  - Acute kidney injury [Unknown]
  - Cough [Unknown]
  - Dyspnoea [Unknown]
  - Fatigue [Unknown]
  - Liver function test abnormal [Unknown]
  - Cardiac failure [Unknown]
  - Pyrexia [Unknown]
  - Neutropenia [Unknown]
  - Anaemia [Unknown]
  - Pneumonia [Fatal]
